FAERS Safety Report 10080324 (Version 2)
Quarter: 2014Q2

REPORT INFORMATION
  Report Type: Spontaneous
  Country: US (occurrence: US)
  Receive Date: 20140415
  Receipt Date: 20140506
  Transmission Date: 20141212
  Serious: Yes (Hospitalization)
  Sender: FDA-Public Use
  Company Number: PHEH2014US007268

PATIENT
  Sex: Female

DRUGS (2)
  1. GILENYA [Suspect]
     Indication: RELAPSING-REMITTING MULTIPLE SCLEROSIS
     Dosage: 0.5 MG, QD
     Route: 048
     Dates: start: 201402
  2. BETASERON [Concomitant]
     Dates: start: 201210, end: 2013

REACTIONS (3)
  - Hepatic necrosis [Unknown]
  - Hepatomegaly [Unknown]
  - Liver function test abnormal [Unknown]
